FAERS Safety Report 8097488-4 (Version None)
Quarter: 2012Q1

REPORT INFORMATION
  Report Type: 
  Country: None (occurrence: None)
  Receive Date: 20120129
  Receipt Date: 20111121
  Transmission Date: 20120608
  Serious: No
  Sender: FDA-Public Use
  Company Number: US-ABBOTT-11P-163-0876613-00

PATIENT
  Age: 21 Year
  Sex: Female

DRUGS (5)
  1. METHOTREXATE [Concomitant]
     Indication: JUVENILE ARTHRITIS
  2. HUMIRA [Suspect]
     Indication: JUVENILE ARTHRITIS
     Dates: start: 20111106
  3. VITAMIN E [Concomitant]
     Indication: PRODUCT USED FOR UNKNOWN INDICATION
     Dosage: DAILY
  4. LO/OVRAL [Concomitant]
     Indication: CONTRACEPTION
  5. FOLIC ACID [Concomitant]
     Indication: PRODUCT USED FOR UNKNOWN INDICATION
     Dosage: 2 PILLS DAILY

REACTIONS (4)
  - INJECTION SITE NODULE [None]
  - INJECTION SITE URTICARIA [None]
  - INJECTION SITE SWELLING [None]
  - INJECTION SITE WARMTH [None]
